FAERS Safety Report 9319448 (Version 1)
Quarter: 2013Q2

REPORT INFORMATION
  Report Type: Spontaneous
  Country: US (occurrence: None)
  Receive Date: 20130529
  Receipt Date: 20130529
  Transmission Date: 20140414
  Serious: Yes (Hospitalization)
  Sender: FDA-Public Use
  Company Number: None

PATIENT
  Age: 68 Year
  Sex: Male
  Weight: 135.1 kg

DRUGS (1)
  1. METOPROLOL [Suspect]
     Indication: HYPERTENSION
     Dosage: MG, PO
     Route: 048
     Dates: start: 20130416, end: 20130525

REACTIONS (6)
  - Palpitations [None]
  - Bradycardia [None]
  - Cardiac failure congestive [None]
  - Renal failure [None]
  - Mitral valve stenosis [None]
  - Condition aggravated [None]
